FAERS Safety Report 8166547-X (Version None)
Quarter: 2012Q1

REPORT INFORMATION
  Report Type: 
  Country: None (occurrence: None)
  Receive Date: 20120227
  Receipt Date: 20110624
  Transmission Date: 20120608
  Serious: Yes (Other)
  Sender: FDA-Public Use
  Company Number: US-BRISTOL-MYERS SQUIBB COMPANY-15859473

PATIENT
  Age: 66 Year
  Sex: Male

DRUGS (11)
  1. TAXOL [Suspect]
     Dates: start: 20110601
  2. ACETYLSALICYLIC ACID SRT [Concomitant]
  3. VIAGRA [Concomitant]
  4. PREDNISONE TAB [Concomitant]
  5. ERBITUX [Suspect]
     Route: 042
     Dates: start: 20110601, end: 20110601
  6. AMBIEN [Concomitant]
  7. PERCOCET [Concomitant]
  8. CARBOPLATIN [Suspect]
     Dates: start: 20110601
  9. PREVACID [Concomitant]
  10. METOPROLOL [Concomitant]
  11. M.V.I. [Concomitant]

REACTIONS (2)
  - HAEMOPTYSIS [None]
  - THROMBOCYTOPENIA [None]
